FAERS Safety Report 6729162-8 (Version None)
Quarter: 2010Q2

REPORT INFORMATION
  Report Type: 
  Country: None (occurrence: None)
  Receive Date: 20100517
  Receipt Date: 20100408
  Transmission Date: 20101027
  Serious: No
  Sender: FDA-Public Use
  Company Number: US-ABBOTT-10P-163-0637187-00

PATIENT
  Sex: Female
  Weight: 70.824 kg

DRUGS (13)
  1. SIMCOR [Suspect]
     Indication: BLOOD CHOLESTEROL INCREASED
     Dosage: 1000/20MG
     Dates: start: 20091101
  2. SIMCOR [Suspect]
     Indication: BLOOD CHOLESTEROL DECREASED
  3. APPLE CIDER VINEGAR + GREEN TEA SUPPLEMENT [Concomitant]
     Indication: DRUG USE FOR UNKNOWN INDICATION
     Dosage: EVERYDAY
     Route: 048
  4. COD LIVER OIL [Concomitant]
     Indication: DRUG USE FOR UNKNOWN INDICATION
     Dosage: EVERYDAY
     Route: 048
  5. FISH OIL [Concomitant]
     Indication: DRUG USE FOR UNKNOWN INDICATION
     Dosage: EVERYDAY
     Route: 048
  6. VIT B12 [Concomitant]
     Indication: DRUG USE FOR UNKNOWN INDICATION
     Dosage: EVERYDAY
     Route: 048
  7. GLYBURIDE [Concomitant]
     Indication: DRUG USE FOR UNKNOWN INDICATION
     Dosage: EVERYDAY
     Route: 048
  8. METFORMIN HYDROCHLORIDE [Concomitant]
     Indication: DRUG USE FOR UNKNOWN INDICATION
     Route: 048
  9. FUROSEMIDE [Concomitant]
     Indication: DRUG USE FOR UNKNOWN INDICATION
     Dosage: EVERYDAY
     Route: 048
  10. WELCHOL [Concomitant]
     Indication: DRUG USE FOR UNKNOWN INDICATION
     Dosage: EVERYDAY
     Route: 048
  11. ASPIRIN [Concomitant]
     Indication: DRUG USE FOR UNKNOWN INDICATION
     Route: 048
  12. AZOR [Concomitant]
     Indication: DRUG USE FOR UNKNOWN INDICATION
     Dosage: EVERYDAY
     Route: 048
  13. GARLIQUE [Concomitant]
     Indication: DRUG USE FOR UNKNOWN INDICATION
     Dosage: DAILY

REACTIONS (1)
  - RASH PAPULAR [None]
